FAERS Safety Report 7646498-7 (Version None)
Quarter: 2011Q3

REPORT INFORMATION
  Report Type: 
  Country: None (occurrence: None)
  Receive Date: 20110725
  Receipt Date: 20110712
  Transmission Date: 20111222
  Serious: Yes (Hospitalization)
  Sender: FDA-Public Use
  Company Number: DSA_47204_2011

PATIENT
  Age: 78 Year
  Sex: Female
  Weight: 42 kg

DRUGS (10)
  1. ASPIRIN [Concomitant]
  2. MIICOSTA [Concomitant]
  3. CANDESARTAN CILEXETIL [Concomitant]
  4. CLARITHROMYCIN [Suspect]
     Dosage: (DF ORAL)
     Route: 048
  5. ATORVASTATIN [Concomitant]
  6. SIGMART [Concomitant]
  7. GASTER /00706001/ [Concomitant]
  8. LOSENN /00476901/ [Concomitant]
  9. DILTIAZEM HYDROCHLORIDE (DILTIAZEM HYDROCHLORIDE )  200 MG [Suspect]
     Indication: HYPERTENSION
     Dosage: (DF ORAL)
     Route: 048
  10. ZOLPIDEM [Concomitant]

REACTIONS (23)
  - COUGH [None]
  - NODAL RHYTHM [None]
  - BRADYCARDIA [None]
  - HAEMATOCRIT DECREASED [None]
  - HYPOTENSION [None]
  - CARDIAC MURMUR [None]
  - ADAMS-STOKES SYNDROME [None]
  - FALL [None]
  - OROPHARYNGEAL PAIN [None]
  - BLOOD AMYLASE INCREASED [None]
  - ATRIOVENTRICULAR BLOCK COMPLETE [None]
  - DRUG INTERACTION [None]
  - HEART RATE INCREASED [None]
  - HAEMOGLOBIN DECREASED [None]
  - CEREBRAL ATROPHY [None]
  - PYREXIA [None]
  - DISCOMFORT [None]
  - WHITE BLOOD CELL COUNT DECREASED [None]
  - DIZZINESS [None]
  - LOSS OF CONSCIOUSNESS [None]
  - BLOOD UREA INCREASED [None]
  - VOMITING [None]
  - BLOOD ALKALINE PHOSPHATASE INCREASED [None]
